FAERS Safety Report 9726193 (Version 2)
Quarter: 2013Q4

REPORT INFORMATION
  Report Type: Spontaneous
  Country: US (occurrence: US)
  Receive Date: 20131203
  Receipt Date: 20131223
  Transmission Date: 20140711
  Serious: Yes (Hospitalization, Other)
  Sender: FDA-Public Use
  Company Number: US-BAYER-2013-144992

PATIENT
  Age: 26 Year
  Sex: Female
  Weight: 68.03 kg

DRUGS (4)
  1. MIRENA [Suspect]
     Indication: CONTRACEPTION
     Dosage: 20 MCG/24HR, CONT
     Route: 015
     Dates: start: 200709, end: 20111207
  2. IBUPROFEN [Concomitant]
     Indication: BACK PAIN
     Dosage: 600 MG, EVERY 6 HOURS FOR 30 DAYS
     Route: 048
  3. PRENAVITE [Concomitant]
     Dosage: 28 MG, UNK
  4. MEDROXYPROGESTERONE [Concomitant]
     Dosage: 10 MG, TAB

REACTIONS (19)
  - Uterine perforation [None]
  - Internal injury [None]
  - Genital haemorrhage [None]
  - Menorrhagia [None]
  - Device issue [None]
  - Emotional distress [None]
  - Depression [None]
  - Amenorrhoea [None]
  - Abdominal pain [None]
  - Pelvic pain [None]
  - Injury [None]
  - Medical device discomfort [None]
  - Anxiety [None]
  - Depressed mood [None]
  - Fear [None]
  - Device dislocation [None]
  - Pregnancy with contraceptive device [None]
  - Abortion spontaneous [None]
  - Drug ineffective [None]
